FAERS Safety Report 4434197-4 (Version None)
Quarter: 2004Q3

REPORT INFORMATION
  Report Type: 
  Country: None (occurrence: None)
  Receive Date: 20040825
  Receipt Date: 20040818
  Transmission Date: 20050211
  Serious: Yes (Death, Hospitalization)
  Sender: FDA-Public Use
  Company Number: 2004IC000343

PATIENT
  Age: 59 Year
  Sex: Female

DRUGS (6)
  1. FLUOROURACIL [Suspect]
     Indication: METASTASES TO BONE
     Dosage: 500 MG; INTRAVENOUS;    3 DF; ORAL
     Route: 042
     Dates: start: 20020125, end: 20020430
  2. FLUOROURACIL [Suspect]
     Indication: METASTASES TO BONE
     Dosage: 500 MG; INTRAVENOUS;    3 DF; ORAL
     Route: 042
     Dates: start: 20020523, end: 20021119
  3. MITOMYCIN [Suspect]
     Indication: METASTASES TO BONE
     Dosage: 4 MG; INTRAVENOUS
     Route: 042
     Dates: start: 20020523, end: 20021119
  4. HERCEPTIN [Suspect]
     Indication: METASTASES TO BONE
     Dosage: 98 MG; INTRAVENOUS
     Route: 042
     Dates: start: 20020515, end: 20021203
  5. ANASTROZOLE [Concomitant]
  6. FURTULON [Concomitant]

REACTIONS (6)
  - ANAEMIA [None]
  - LYMPHANGIOSIS CARCINOMATOSA [None]
  - RENAL IMPAIRMENT [None]
  - THROMBOCYTOPENIA [None]
  - THROMBOTIC MICROANGIOPATHY [None]
  - TUMOUR MARKER INCREASED [None]
